FAERS Safety Report 12641184 (Version 7)
Quarter: 2019Q2

REPORT INFORMATION
  Report Type: Spontaneous
  Country: US (occurrence: US)
  Receive Date: 20160810
  Receipt Date: 20190503
  Transmission Date: 20190711
  Serious: No
  Sender: FDA-Public Use
  Company Number: US-PFIZER INC-2016353389

PATIENT
  Age: 78 Year
  Sex: Female

DRUGS (1)
  1. ALTACE [Suspect]
     Active Substance: RAMIPRIL
     Dosage: UNK

REACTIONS (3)
  - Drug hypersensitivity [Unknown]
  - Ulcer [Unknown]
  - Cough [Unknown]
